FAERS Safety Report 8238999-8 (Version None)
Quarter: 2012Q1

REPORT INFORMATION
  Report Type: 
  Country: None (occurrence: None)
  Receive Date: 20120327
  Receipt Date: 20120316
  Transmission Date: 20120608
  Serious: Yes (Hospitalization)
  Sender: FDA-Public Use
  Company Number: PHHO2011GB05920

PATIENT
  Sex: Female
  Weight: 56.4 kg

DRUGS (1)
  1. ILARIS [Suspect]
     Indication: JUVENILE ARTHRITIS
     Dosage: 225 MG, UNK
     Route: 058
     Dates: start: 20110221

REACTIONS (1)
  - HISTIOCYTOSIS HAEMATOPHAGIC [None]
